FAERS Safety Report 4515121-2 (Version None)
Quarter: 2004Q4

REPORT INFORMATION
  Report Type: 
  Country: None (occurrence: None)
  Receive Date: 20041129
  Receipt Date: 20041129
  Transmission Date: 20050328
  Serious: No
  Sender: FDA-Public Use
  Company Number: None

PATIENT
  Sex: Male

DRUGS (1)
  1. TRICOR [Suspect]

REACTIONS (2)
  - GASTRIC DISORDER [None]
  - NEUROMYOPATHY [None]
